FAERS Safety Report 7595037-8 (Version None)
Quarter: 2011Q2

REPORT INFORMATION
  Report Type: 
  Country: None (occurrence: None)
  Receive Date: 20110620
  Receipt Date: 20110404
  Transmission Date: 20111010
  Serious: Yes (Hospitalization)
  Sender: FDA-Public Use
  Company Number: UTC-006095

PATIENT
  Age: 73 Year
  Sex: Female

DRUGS (1)
  1. TYVASO [Suspect]
     Indication: PULMONARY HYPERTENSION
     Dosage: 48 MCG (12 MCG, 4 IN 1 D), INHALATION
     Route: 055
     Dates: start: 20110216

REACTIONS (1)
  - PULMONARY ARTERIAL HYPERTENSION [None]
